FAERS Safety Report 4948426-1 (Version None)
Quarter: 2006Q1

REPORT INFORMATION
  Report Type: 
  Country: None (occurrence: None)
  Receive Date: 20060320
  Receipt Date: 20060310
  Transmission Date: 20060701
  Serious: Yes (Death, Hospitalization, Disabling)
  Sender: FDA-Public Use
  Company Number: JP-ABBOTT-06P-087-0327795-00

PATIENT
  Sex: Male

DRUGS (22)
  1. KALETRA [Suspect]
     Indication: HIV INFECTION
     Route: 048
     Dates: start: 20020917, end: 20030717
  2. KALETRA [Suspect]
     Route: 048
     Dates: start: 20040219, end: 20040516
  3. DIDANOSINE [Suspect]
     Indication: HIV INFECTION
     Route: 048
     Dates: start: 20011025, end: 20020709
  4. STAVUDINE [Suspect]
     Indication: HIV INFECTION
     Route: 048
     Dates: start: 20011127, end: 20020709
  5. EFAVIRENZ [Suspect]
     Indication: HIV INFECTION
     Route: 048
     Dates: start: 20011025, end: 20020709
  6. EFAVIRENZ [Suspect]
     Route: 048
     Dates: start: 20020917, end: 20030717
  7. EFAVIRENZ [Suspect]
     Route: 048
     Dates: start: 20040219, end: 20040516
  8. LAMIVUDINE [Suspect]
     Indication: HIV INFECTION
     Route: 048
     Dates: start: 20040219, end: 20040516
  9. PREDNISOLONE [Suspect]
     Indication: ADRENAL INSUFFICIENCY
     Route: 048
     Dates: start: 20010928, end: 20040522
  10. ZIDOVUDINE [Concomitant]
     Indication: HIV INFECTION
     Route: 048
     Dates: start: 20011025, end: 20011126
  11. ABACAVIR [Concomitant]
     Indication: HIV INFECTION
     Route: 048
     Dates: start: 20020917, end: 20030717
  12. BACTRIM [Concomitant]
     Indication: ANTIBIOTIC PROPHYLAXIS
     Route: 048
     Dates: start: 20020402, end: 20040526
  13. GANCICLOVIR [Concomitant]
     Indication: CYTOMEGALOVIRUS CHORIORETINITIS
     Route: 048
     Dates: start: 20021119, end: 20021126
  14. GANCICLOVIR [Concomitant]
     Indication: CYTOMEGALOVIRUS COLITIS
     Route: 042
     Dates: start: 20011024, end: 20011031
  15. GANCICLOVIR [Concomitant]
     Indication: ENCEPHALITIS CYTOMEGALOVIRUS
     Route: 042
     Dates: start: 20011202, end: 20011221
  16. PROPERICIAZINE [Concomitant]
     Indication: DELIRIUM
     Route: 048
     Dates: start: 20011217, end: 20021119
  17. AMANTADINE HCL [Concomitant]
     Indication: PARKINSON'S DISEASE
     Route: 048
     Dates: start: 20020710, end: 20021119
  18. FOSCARNET SODIUM [Concomitant]
     Indication: CYTOMEGALOVIRUS INFECTION
     Route: 042
     Dates: start: 20010926, end: 20011012
  19. FOSCARNET SODIUM [Concomitant]
     Indication: ENCEPHALITIS CYTOMEGALOVIRUS
     Route: 042
     Dates: start: 20011101, end: 20011201
  20. FOSCARNET SODIUM [Concomitant]
     Indication: ADRENALITIS
     Route: 042
     Dates: start: 20011222, end: 20020305
  21. FOSCARNET SODIUM [Concomitant]
     Route: 042
     Dates: start: 20011222, end: 20020305
  22. FOSCARNET SODIUM [Concomitant]
     Route: 042
     Dates: start: 20011222, end: 20020305

REACTIONS (11)
  - BLOOD PRESSURE DECREASED [None]
  - CHEST PAIN [None]
  - CYTOMEGALOVIRUS ANTIGEN [None]
  - CYTOMEGALOVIRUS CHORIORETINITIS [None]
  - DECREASED APPETITE [None]
  - HYPERLIPIDAEMIA [None]
  - HYPOKALAEMIA [None]
  - LACTIC ACIDOSIS [None]
  - MALAISE [None]
  - NAUSEA [None]
  - PNEUMONIA [None]
